FAERS Safety Report 24102044 (Version 1)
Quarter: 2024Q3

REPORT INFORMATION
  Report Type: Report from Study
  Country: CO (occurrence: None)
  Receive Date: 20240717
  Receipt Date: 20240717
  Transmission Date: 20241017
  Serious: Yes (Hospitalization, Other)
  Sender: ASTRAZENECA
  Company Number: 2020SE73546

PATIENT
  Age: 15371 Day
  Sex: Female

DRUGS (1)
  1. FASENRA [Suspect]
     Active Substance: BENRALIZUMAB
     Indication: Asthma
     Route: 058
     Dates: start: 20200227

REACTIONS (3)
  - Heart rate irregular [Unknown]
  - Dyspnoea [Not Recovered/Not Resolved]
  - Suffocation feeling [Not Recovered/Not Resolved]

NARRATIVE: CASE EVENT DATE: 20200529
